FAERS Safety Report 14450412 (Version 1)
Quarter: 2018Q1

REPORT INFORMATION
  Report Type: Other
  Country: IT (occurrence: IT)
  Receive Date: 20180129
  Receipt Date: 20180129
  Transmission Date: 20180509
  Serious: Yes (Hospitalization)
  Sender: FDA-Public Use
  Company Number: IT-CONCORDIA PHARMACEUTICALS INC.-E2B_00009604

PATIENT
  Age: 77 Year
  Sex: Male

DRUGS (10)
  1. ATORVASTATIN [Concomitant]
     Active Substance: ATORVASTATIN
  2. SUCRALFIN [Concomitant]
  3. FLECAINIDE [Suspect]
     Active Substance: FLECAINIDE
     Route: 048
     Dates: start: 20170101, end: 20170624
  4. COUMADIN [Concomitant]
     Active Substance: WARFARIN SODIUM
  5. TORASEMIDE [Concomitant]
     Active Substance: TORSEMIDE
  6. LANOXIN [Suspect]
     Active Substance: DIGOXIN
     Indication: ATRIAL FIBRILLATION
     Route: 048
     Dates: start: 20170101, end: 20170624
  7. ONBREZ BREEZHALER [Concomitant]
     Active Substance: INDACATEROL
  8. ROCALTROL [Concomitant]
     Active Substance: CALCITRIOL
  9. METOCAL [Concomitant]
  10. LANSOX [Concomitant]
     Active Substance: LANSOPRAZOLE

REACTIONS (2)
  - Cardiac flutter [Unknown]
  - Respiratory disorder [Unknown]

NARRATIVE: CASE EVENT DATE: 20170624
